FAERS Safety Report 17214581 (Version 1)
Quarter: 2019Q4

REPORT INFORMATION
  Report Type: Spontaneous
  Country: JP (occurrence: JP)
  Receive Date: 20191230
  Receipt Date: 20191230
  Transmission Date: 20200122
  Serious: Yes (Other)
  Sender: FDA-Public Use
  Company Number: JP-PFIZER INC-2019494519

PATIENT
  Age: 74 Year
  Sex: Male

DRUGS (3)
  1. BEVACIZUMAB. [Concomitant]
     Active Substance: BEVACIZUMAB
     Indication: COLON CANCER STAGE III
     Dosage: 7.5 MG/KG, (BODY WEIGHT ON DAY 1 FOR SEVEN COURSES DURING APPROXIMATELY 5 MONTHS)
  2. CAPECITABINE. [Concomitant]
     Active Substance: CAPECITABINE
     Indication: COLON CANCER STAGE IV
     Dosage: 1500 MG/KG, 2X/DAY (TRIWEEKLY CYCLE)
     Route: 048
  3. OXALIPLATIN. [Suspect]
     Active Substance: OXALIPLATIN
     Indication: COLON CANCER STAGE IV
     Dosage: 130 MG/M2, (ON DAY 1)

REACTIONS (1)
  - Neuropathy peripheral [Unknown]
